FAERS Safety Report 23517477 (Version 1)
Quarter: 2024Q1

REPORT INFORMATION
  Report Type: Spontaneous
  Country: US (occurrence: US)
  Receive Date: 20240213
  Receipt Date: 20240213
  Transmission Date: 20240410
  Serious: Yes (Hospitalization)
  Sender: FDA-Public Use
  Company Number: US-GLAND PHARMA LIMITED-2024US000454

PATIENT

DRUGS (1)
  1. ROCURONIUM BROMIDE [Suspect]
     Active Substance: ROCURONIUM BROMIDE
     Indication: Anaphylactic shock
     Dosage: UNK
     Route: 065
     Dates: start: 20240116, end: 20240118

REACTIONS (4)
  - Generalised oedema [Recovering/Resolving]
  - Erythema [Recovering/Resolving]
  - Blood pressure decreased [Recovering/Resolving]
  - Urticaria [Recovering/Resolving]

NARRATIVE: CASE EVENT DATE: 20240116
